FAERS Safety Report 11912684 (Version 1)
Quarter: 2016Q1

REPORT INFORMATION
  Report Type: Spontaneous
  Country: US (occurrence: None)
  Receive Date: 20160112
  Receipt Date: 20160112
  Transmission Date: 20160526
  Serious: Yes (Disabling)
  Sender: FDA-Public Use
  Company Number: None

PATIENT
  Age: 75 Year
  Sex: Female
  Weight: 63.5 kg

DRUGS (6)
  1. SYNTHROID [Concomitant]
     Active Substance: LEVOTHYROXINE SODIUM
  2. FISH OIL [Concomitant]
     Active Substance: FISH OIL
  3. EFUDEX [Suspect]
     Active Substance: FLUOROURACIL
     Indication: SKIN CANCER
     Dosage: RUBBED ON SKIN
     Dates: start: 20151120
  4. CVS ONE A DAY VITAMIN [Concomitant]
  5. AVAPRO [Concomitant]
     Active Substance: IRBESARTAN
  6. LIDEX [Suspect]
     Active Substance: FLUOCINONIDE

REACTIONS (1)
  - Transient acantholytic dermatosis [None]
